FAERS Safety Report 11599707 (Version 1)
Quarter: 2015Q3

REPORT INFORMATION
  Report Type: Spontaneous
  Country: US (occurrence: US)
  Receive Date: 20150916
  Receipt Date: 20150916
  Transmission Date: 20151125
  Serious: No
  Sender: FDA-Public Use
  Company Number: US-ELI_LILLY_AND_COMPANY-US200709004229

PATIENT
  Age: 65 Year
  Sex: Female
  Weight: 56.69 kg

DRUGS (4)
  1. ZYRTEC [Concomitant]
     Active Substance: CETIRIZINE HYDROCHLORIDE
     Indication: MULTIPLE ALLERGIES
  2. VITAMIN D [Concomitant]
     Active Substance: CHOLECALCIFEROL
  3. FOSAMAX [Concomitant]
     Active Substance: ALENDRONATE SODIUM
  4. FORTEO [Suspect]
     Active Substance: TERIPARATIDE
     Indication: OSTEOPOROSIS
     Dosage: 20 UG, DAILY (1/D)
     Dates: start: 20070901, end: 20071113

REACTIONS (3)
  - Herpes zoster [Recovered/Resolved]
  - Blood calcium increased [Recovered/Resolved]
  - Injection site haemorrhage [Recovering/Resolving]

NARRATIVE: CASE EVENT DATE: 200709
